FAERS Safety Report 12956925 (Version 2)
Quarter: 2016Q4

REPORT INFORMATION
  Report Type: Spontaneous
  Country: FR (occurrence: FR)
  Receive Date: 20161118
  Receipt Date: 20161220
  Transmission Date: 20170207
  Serious: Yes (Hospitalization, Other)
  Sender: FDA-Public Use
  Company Number: FR-009507513-1505FRA001746

PATIENT
  Age: 28 Year
  Sex: Female
  Weight: 50 kg

DRUGS (2)
  1. NEXPLANON [Suspect]
     Active Substance: ETONOGESTREL
     Dosage: RIGHT ARM INSERTION
     Route: 059
     Dates: start: 20151016
  2. NEXPLANON [Suspect]
     Active Substance: ETONOGESTREL
     Dosage: 1 DF, UNK
     Route: 059
     Dates: start: 20140819, end: 20141231

REACTIONS (15)
  - Weight increased [Unknown]
  - Complication associated with device [Recovered/Resolved]
  - Pain in extremity [Unknown]
  - Dysaesthesia [Not Recovered/Not Resolved]
  - Complication of device removal [Recovered/Resolved]
  - Headache [Unknown]
  - Scar [Not Recovered/Not Resolved]
  - General anaesthesia [Recovered/Resolved]
  - Haematoma [Unknown]
  - Migration of implanted drug [Recovered/Resolved]
  - Pain [Recovered/Resolved]
  - Device deployment issue [Recovered/Resolved]
  - Acne [Unknown]
  - Metrorrhagia [Unknown]
  - Implant site oedema [Unknown]

NARRATIVE: CASE EVENT DATE: 2014
